FAERS Safety Report 4999205-0 (Version None)
Quarter: 2006Q2

REPORT INFORMATION
  Report Type: 
  Country: None (occurrence: None)
  Receive Date: 20060509
  Receipt Date: 20060421
  Transmission Date: 20061013
  Serious: Yes (Hospitalization, Other)
  Sender: FDA-Public Use
  Company Number: US-0509121724

PATIENT
  Sex: Female
  Weight: 93 kg

DRUGS (1)
  1. ZYPREXA [Suspect]
     Dosage: 25 MG, 2/D, ORAL
     Route: 048
     Dates: start: 20020101, end: 20050101

REACTIONS (10)
  - BLOOD CHOLESTEROL ABNORMAL [None]
  - DIABETES MELLITUS [None]
  - EMOTIONAL DISTRESS [None]
  - HYPERTENSION [None]
  - MUMPS [None]
  - MYOCARDIAL ISCHAEMIA [None]
  - OBESITY [None]
  - PRESCRIBED OVERDOSE [None]
  - VENTRICULAR TACHYCARDIA [None]
  - VISION BLURRED [None]
